FAERS Safety Report 5333382-7 (Version None)
Quarter: 2007Q2

REPORT INFORMATION
  Report Type: 
  Country: None (occurrence: None)
  Receive Date: 20070524
  Receipt Date: 20070511
  Transmission Date: 20071010
  Serious: Yes (Other)
  Sender: FDA-Public Use
  Company Number: US-ROCHE-463196

PATIENT
  Age: 48 Year
  Sex: Male

DRUGS (11)
  1. PEGASYS [Suspect]
     Indication: HEPATITIS C
     Dosage: STRENGTH REPORTED AS 180 MCG/0.5CC.
     Route: 058
     Dates: start: 20060411, end: 20060911
  2. PEGASYS [Suspect]
     Route: 058
  3. COPEGUS [Suspect]
     Indication: HEPATITIS C
     Route: 048
     Dates: start: 20060411, end: 20060911
  4. COPEGUS [Suspect]
     Route: 048
  5. KLONOPIN [Concomitant]
     Indication: TREMOR
     Dosage: AT BEDTIME. INIDICATION REPORTED AS TREMORS, PANIC.
     Route: 048
  6. WELLBUTRIN [Concomitant]
     Indication: DEPRESSION
     Route: 048
  7. LEXAPRO [Concomitant]
     Indication: DEPRESSION
  8. OXYCONTIN [Concomitant]
     Indication: BACK PAIN
  9. ATENOLOL [Concomitant]
  10. XANAX [Concomitant]
     Indication: ANXIETY
  11. PROTONIX [Concomitant]

REACTIONS (5)
  - DEHYDRATION [None]
  - HYPERSOMNIA [None]
  - PLATELET COUNT DECREASED [None]
  - RED BLOOD CELL COUNT DECREASED [None]
  - WHITE BLOOD CELL COUNT DECREASED [None]
